FAERS Safety Report 25232365 (Version 1)
Quarter: 2025Q2

REPORT INFORMATION
  Report Type: Report from Study
  Country: CA (occurrence: CA)
  Receive Date: 20250423
  Receipt Date: 20250423
  Transmission Date: 20250716
  Serious: Yes (Hospitalization, Other)
  Sender: ABBVIE
  Company Number: CA-ABBVIE-6200054

PATIENT
  Sex: Female

DRUGS (1)
  1. SKYRIZI [Suspect]
     Active Substance: RISANKIZUMAB-RZAA
     Indication: Crohn^s disease
     Dosage: DOSE STRENGTH:360MG/2.4ML
     Route: 058

REACTIONS (3)
  - Renal failure [Recovering/Resolving]
  - Pyrexia [Recovering/Resolving]
  - Pulmonary sepsis [Recovering/Resolving]
